FAERS Safety Report 8297570-2 (Version None)
Quarter: 2012Q2

REPORT INFORMATION
  Report Type: 
  Country: None (occurrence: None)
  Receive Date: 20120419
  Receipt Date: 20120413
  Transmission Date: 20120825
  Serious: Yes (Life-Threatening, Other)
  Sender: FDA-Public Use
  Company Number: PHHY2009BR35649

PATIENT
  Sex: Female
  Weight: 60 kg

DRUGS (4)
  1. LOSARTAN POTASSIUM [Concomitant]
     Indication: HYPERTENSION
     Dosage: 50 MG, BID
     Route: 048
  2. SANDOSTATIN LAR [Suspect]
     Indication: ACROMEGALY
     Dosage: 20 MG, QMO
     Dates: start: 20081001, end: 20090501
  3. SANDOSTATIN LAR [Suspect]
     Dosage: 20 MG, QMO
     Dates: end: 20091014
  4. ANTIDEPRESSANTS [Concomitant]

REACTIONS (37)
  - STRESS [None]
  - PAIN [None]
  - INSULIN-LIKE GROWTH FACTOR INCREASED [None]
  - WEIGHT INCREASED [None]
  - DYSPHONIA [None]
  - ABDOMINAL DISCOMFORT [None]
  - ENDOMETRIOSIS [None]
  - MALAISE [None]
  - OEDEMA PERIPHERAL [None]
  - ABDOMINAL DISTENSION [None]
  - HAEMORRHAGE [None]
  - DIARRHOEA [None]
  - BLOOD GLUCOSE ABNORMAL [None]
  - FORMICATION [None]
  - ACROMEGALY [None]
  - PAIN IN EXTREMITY [None]
  - DRY SKIN [None]
  - ANAEMIA [None]
  - DECREASED APPETITE [None]
  - ANXIETY [None]
  - DEPRESSION [None]
  - SWELLING FACE [None]
  - FATIGUE [None]
  - INJECTION SITE PAIN [None]
  - FEELING ABNORMAL [None]
  - HAIR DISORDER [None]
  - BLOOD PROLACTIN ABNORMAL [None]
  - WRONG TECHNIQUE IN DRUG USAGE PROCESS [None]
  - DIZZINESS [None]
  - BACK PAIN [None]
  - BLOOD GROWTH HORMONE INCREASED [None]
  - EYE SWELLING [None]
  - FEELINGS OF WORTHLESSNESS [None]
  - ABDOMINAL PAIN [None]
  - OEDEMA [None]
  - ALOPECIA [None]
  - LACTOSE INTOLERANCE [None]
